FAERS Safety Report 10261912 (Version 1)
Quarter: 2014Q2

REPORT INFORMATION
  Report Type: Spontaneous
  Country: TN (occurrence: TN)
  Receive Date: 20140626
  Receipt Date: 20140626
  Transmission Date: 20141212
  Serious: Yes (Other)
  Sender: FDA-Public Use
  Company Number: PHHY2014TN078745

PATIENT
  Age: 14 Year
  Sex: Female

DRUGS (8)
  1. CARBAMAZEPINE [Suspect]
     Indication: AFFECTIVE DISORDER
  2. VALPROIC ACID [Suspect]
     Indication: AFFECTIVE DISORDER
  3. RISPERIDONE [Suspect]
     Indication: PSYCHOTIC DISORDER
  4. OLANZAPINE [Suspect]
     Indication: PSYCHOTIC DISORDER
  5. QUETIAPINE [Suspect]
     Indication: PSYCHOTIC DISORDER
  6. HALOPERIDOL [Suspect]
     Indication: PSYCHOTIC DISORDER
  7. LITHIUM [Suspect]
     Indication: AFFECTIVE DISORDER
  8. CLOZAPINE [Concomitant]
     Dosage: 400 MG, DAILY

REACTIONS (2)
  - Bipolar disorder [Recovering/Resolving]
  - Drug resistance [Unknown]
